FAERS Safety Report 21113755 (Version 1)
Quarter: 2022Q3

REPORT INFORMATION
  Report Type: Spontaneous
  Country: US (occurrence: None)
  Receive Date: 20220721
  Receipt Date: 20220721
  Transmission Date: 20221027
  Serious: No
  Sender: FDA-Public Use
  Company Number: None

PATIENT
  Age: 51 Year
  Sex: Female
  Weight: 143.55 kg

DRUGS (1)
  1. VYEPTI [Suspect]
     Active Substance: EPTINEZUMAB-JJMR
     Indication: Migraine
     Route: 042

REACTIONS (5)
  - Pruritus [None]
  - Infusion site pruritus [None]
  - Influenza like illness [None]
  - Malaise [None]
  - Arthralgia [None]

NARRATIVE: CASE EVENT DATE: 20220719
